FAERS Safety Report 4324089-3 (Version None)
Quarter: 2004Q1

REPORT INFORMATION
  Report Type: 
  Country: None (occurrence: None)
  Receive Date: 20040326
  Receipt Date: 20031217
  Transmission Date: 20041129
  Serious: No
  Sender: FDA-Public Use
  Company Number: US-GLAXOSMITHKLINE-A0443508A

PATIENT
  Age: 51 Year
  Sex: Female

DRUGS (2)
  1. ADVAIR DISKUS 100/50 [Suspect]
     Indication: ASTHMA
     Dosage: 1PUFF TWICE PER DAY
     Route: 055
     Dates: start: 20020101, end: 20020101
  2. FLOVENT [Suspect]
     Indication: ASTHMA
     Dosage: 110MCG FOUR TIMES PER DAY
     Route: 055
     Dates: start: 20020101, end: 20030101

REACTIONS (4)
  - DRUG INEFFECTIVE [None]
  - STOMATITIS [None]
  - SUFFOCATION FEELING [None]
  - THROAT IRRITATION [None]
